FAERS Safety Report 10299381 (Version 1)
Quarter: 2014Q3

REPORT INFORMATION
  Report Type: Spontaneous
  Country: FR (occurrence: FR)
  Receive Date: 20140711
  Receipt Date: 20140711
  Transmission Date: 20150326
  Serious: Yes (Hospitalization)
  Sender: FDA-Public Use
  Company Number: FR-BRISTOL-MYERS SQUIBB COMPANY-21182779

PATIENT
  Age: 64 Year
  Sex: Male

DRUGS (6)
  1. LYSODREN [Suspect]
     Active Substance: MITOTANE
     Indication: ADRENOCORTICAL CARCINOMA
     Dosage: 2500MG
     Route: 048
     Dates: start: 2010, end: 20140606
  2. CITALOPRAM [Concomitant]
     Active Substance: CITALOPRAM HYDROBROMIDE
  3. DIFFU-K [Concomitant]
     Active Substance: POTASSIUM CHLORIDE
  4. LEVOTHYROX [Concomitant]
     Active Substance: LEVOTHYROXINE
  5. HYDROCORTISONE. [Concomitant]
     Active Substance: HYDROCORTISONE
  6. CRESTOR [Concomitant]
     Active Substance: ROSUVASTATIN CALCIUM

REACTIONS (7)
  - Photophobia [Recovered/Resolved]
  - Disturbance in attention [Recovered/Resolved with Sequelae]
  - Papilloedema [Unknown]
  - Headache [Recovered/Resolved]
  - Diplopia [Recovered/Resolved]
  - Nausea [Recovered/Resolved]
  - Vomiting [Recovered/Resolved]

NARRATIVE: CASE EVENT DATE: 20140520
